FAERS Safety Report 4664959-X (Version None)
Quarter: 2005Q2

REPORT INFORMATION
  Report Type: 
  Country: None (occurrence: None)
  Receive Date: 20050518
  Receipt Date: 20050506
  Transmission Date: 20051028
  Serious: Yes (Hospitalization)
  Sender: FDA-Public Use
  Company Number: 2005UW07075

PATIENT
  Age: 84 Year
  Sex: Male

DRUGS (6)
  1. CRESTOR [Suspect]
     Route: 048
  2. DIABETIC MEDICATION [Concomitant]
  3. DIURETICS [Concomitant]
  4. BETA BLOCKER [Concomitant]
  5. ALZHEIMER'S MEDICATION [Concomitant]
  6. ASPIRIN [Concomitant]

REACTIONS (5)
  - BLOOD CREATININE INCREASED [None]
  - BLOOD UREA INCREASED [None]
  - DEHYDRATION [None]
  - HAEMATURIA [None]
  - URINARY TRACT INFECTION [None]
